FAERS Safety Report 21849268 (Version 1)
Quarter: 2023Q1

REPORT INFORMATION
  Report Type: Spontaneous
  Country: US (occurrence: US)
  Receive Date: 20230111
  Receipt Date: 20230111
  Transmission Date: 20230417
  Serious: No
  Sender: FDA-Public Use
  Company Number: US-PFIZER INC-202200798739

PATIENT
  Age: 61 Year
  Sex: Male

DRUGS (3)
  1. XELJANZ XR [Suspect]
     Active Substance: TOFACITINIB CITRATE
     Indication: Arthralgia
     Dosage: 11 MG, AS NEEDED (TAKE IT AS NEED IT/SOMETIMES BREAK IT IN HALF)
  2. METHOTREXATE [Concomitant]
     Active Substance: METHOTREXATE
     Dosage: 4 DF, WEEKLY
  3. TYLENOL [Concomitant]
     Active Substance: ACETAMINOPHEN
     Indication: Pain

REACTIONS (5)
  - Abdominal discomfort [Unknown]
  - Product dose omission issue [Unknown]
  - Intentional product misuse [Unknown]
  - Off label use [Unknown]
  - Wrong technique in product usage process [Unknown]
